FAERS Safety Report 19575994 (Version 1)
Quarter: 2021Q3

REPORT INFORMATION
  Report Type: Spontaneous
  Country: US (occurrence: US)
  Receive Date: 20210718
  Receipt Date: 20210718
  Transmission Date: 20211014
  Serious: Yes (Disabling)
  Sender: FDA-Public Use
  Company Number: None

PATIENT
  Age: 59 Year
  Sex: Female
  Weight: 146.25 kg

DRUGS (1)
  1. JARDIANCE [Suspect]
     Active Substance: EMPAGLIFLOZIN
     Indication: DIABETES MELLITUS
     Dosage: QUANTITY:1 TABLET(S);?
     Route: 048
     Dates: start: 20210621, end: 20210706

REACTIONS (1)
  - Fungal infection [None]

NARRATIVE: CASE EVENT DATE: 20210706
